FAERS Safety Report 6058147-2 (Version None)
Quarter: 2009Q1

REPORT INFORMATION
  Report Type: 
  Country: None (occurrence: None)
  Receive Date: 20090127
  Receipt Date: 20090112
  Transmission Date: 20090719
  Serious: Yes (Hospitalization, Other)
  Sender: FDA-Public Use
  Company Number: 2008BI030939

PATIENT
  Age: 63 Year
  Sex: Male

DRUGS (14)
  1. ZEVALIN [Suspect]
     Indication: NON-HODGKIN'S LYMPHOMA
     Dosage: 31 MCI; 1X; IV
     Route: 042
     Dates: start: 20081010, end: 20081010
  2. ZEVALIN [Suspect]
     Indication: STEM CELL TRANSPLANT
     Dosage: 31 MCI; 1X; IV
     Route: 042
     Dates: start: 20081010, end: 20081010
  3. RITUXIMAB [Concomitant]
  4. AMPHOTERICIN B [Concomitant]
  5. ACICLOVIR [Concomitant]
  6. NEUPOGEN [Concomitant]
  7. CYCLOSPORINE [Concomitant]
  8. FUROSEMIDE [Concomitant]
  9. VANCOMYCIN HCL [Concomitant]
  10. CEFEPIME [Concomitant]
  11. FLUDARABINE PHOSPHATE [Concomitant]
  12. MELPHALAN [Concomitant]
  13. THIOTEPA [Concomitant]
  14. PREV MEDS [Concomitant]

REACTIONS (18)
  - ACUTE PULMONARY OEDEMA [None]
  - ASPARTATE AMINOTRANSFERASE INCREASED [None]
  - BLOOD ALBUMIN DECREASED [None]
  - C-REACTIVE PROTEIN INCREASED [None]
  - CARDIAC FAILURE CONGESTIVE [None]
  - CARDIOMEGALY [None]
  - CATHETER RELATED INFECTION [None]
  - CORYNEBACTERIUM INFECTION [None]
  - FLUID OVERLOAD [None]
  - GENERAL PHYSICAL HEALTH DETERIORATION [None]
  - GENERALISED OEDEMA [None]
  - HAEMODIALYSIS [None]
  - HAEMOGLOBIN DECREASED [None]
  - LABORATORY TEST ABNORMAL [None]
  - NEUTROPENIA [None]
  - RENAL FAILURE [None]
  - RESPIRATORY FAILURE [None]
  - STAPHYLOCOCCAL INFECTION [None]
